FAERS Safety Report 7231136-8 (Version None)
Quarter: 2011Q1

REPORT INFORMATION
  Report Type: 
  Country: None (occurrence: None)
  Receive Date: 20110118
  Receipt Date: 20110112
  Transmission Date: 20110831
  Serious: Yes (Death)
  Sender: FDA-Public Use
  Company Number: JP-ROCHE-753200

PATIENT
  Sex: Male

DRUGS (3)
  1. PARAPLATIN [Suspect]
     Indication: LUNG ADENOCARCINOMA
     Dosage: NOTE: DOSAGE WAS UNCERTAIN.
     Route: 041
  2. ALIMTA [Suspect]
     Indication: LUNG ADENOCARCINOMA
     Dosage: NOTE: DOSAGE WAS UNCERTAIN.
     Route: 041
  3. AVASTIN [Suspect]
     Indication: LUNG ADENOCARCINOMA
     Dosage: STOPE DATE: DEC 2010.
     Route: 041
     Dates: start: 20101220

REACTIONS (1)
  - ACUTE RESPIRATORY DISTRESS SYNDROME [None]
